FAERS Safety Report 22108527 (Version 1)
Quarter: 2023Q1

REPORT INFORMATION
  Report Type: Spontaneous
  Country: US (occurrence: US)
  Receive Date: 20230317
  Receipt Date: 20230317
  Transmission Date: 20230418
  Serious: No
  Sender: FDA-Public Use
  Company Number: US-ALVOGEN-2023089151

PATIENT
  Sex: Female
  Weight: 59.87 kg

DRUGS (3)
  1. ESTRADIOL [Suspect]
     Active Substance: ESTRADIOL
     Indication: Vulvovaginal discomfort
     Dosage: EXPIRATION DATE: FEB-2025
     Route: 067
     Dates: start: 20230120, end: 202301
  2. Medroxypr AC [Concomitant]
     Indication: Hormone replacement therapy
  3. ESTRADIOL [Concomitant]
     Active Substance: ESTRADIOL
     Indication: Hormone replacement therapy

REACTIONS (3)
  - Burning sensation [Unknown]
  - Bladder pain [Unknown]
  - Sleep disorder [Unknown]
